FAERS Safety Report 6915297-3 (Version None)
Quarter: 2010Q3

REPORT INFORMATION
  Report Type: 
  Country: None (occurrence: None)
  Receive Date: 20100809
  Receipt Date: 20091021
  Transmission Date: 20110219
  Serious: No
  Sender: FDA-Public Use
  Company Number: US-ABBOTT-09P-163-0604554-00

PATIENT
  Sex: Female
  Weight: 66.284 kg

DRUGS (6)
  1. DEPAKOTE ER [Suspect]
     Indication: MIGRAINE
     Dates: start: 20090929, end: 20091007
  2. DEPAKOTE ER [Interacting]
     Dates: start: 20091015
  3. DEPAKOTE ER [Interacting]
     Dosage: LOT NUMBER  75222AF21  EXPIRATION 18-MAR-2011
     Dates: start: 20091001
  4. ALIGN [Concomitant]
     Indication: DYSPEPSIA
  5. FLONASE [Concomitant]
     Indication: HYPERSENSITIVITY
  6. VITAMIN TAB [Concomitant]
     Indication: VITAMIN SUPPLEMENTATION

REACTIONS (2)
  - HEADACHE [None]
  - VISUAL ACUITY REDUCED [None]
